FAERS Safety Report 10696772 (Version 1)
Quarter: 2015Q1

REPORT INFORMATION
  Report Type: Spontaneous
  Country: US (occurrence: US)
  Receive Date: 20150108
  Receipt Date: 20150108
  Transmission Date: 20150721
  Serious: Yes (Hospitalization)
  Sender: FDA-Public Use
  Company Number: US-JNJFOC-20150101208

PATIENT
  Sex: Female
  Weight: 62.14 kg

DRUGS (3)
  1. TYLENOL [Suspect]
     Active Substance: ACETAMINOPHEN
     Route: 048
  2. TYLENOL [Suspect]
     Active Substance: ACETAMINOPHEN
     Indication: PAIN
     Route: 048
  3. TYVASO [Concomitant]
     Active Substance: TREPROSTINIL
     Indication: CARDIAC DISORDER
     Dosage: 9 BREATHS PER SESSION, 4 SESSIONS A DAY.
     Route: 065

REACTIONS (1)
  - Drug hypersensitivity [Unknown]
